FAERS Safety Report 14633264 (Version 1)
Quarter: 2018Q1

REPORT INFORMATION
  Report Type: Spontaneous
  Country: FR (occurrence: FR)
  Receive Date: 20180313
  Receipt Date: 20180313
  Transmission Date: 20180509
  Serious: Yes (Hospitalization)
  Sender: FDA-Public Use
  Company Number: FR-EXELIXIS-CABO-18012808

PATIENT
  Age: 70 Year
  Sex: Female
  Weight: 65 kg

DRUGS (10)
  1. CABOMETYX [Suspect]
     Active Substance: CABOZANTINIB S-MALATE
     Dosage: UNK
  2. NOVORAPID [Concomitant]
     Active Substance: INSULIN ASPART
     Indication: INSULIN-REQUIRING TYPE 2 DIABETES MELLITUS
     Dosage: SELON GLYC?MIE ()
     Route: 058
  3. HYDROCHLOROTHIAZIDE. [Concomitant]
     Active Substance: HYDROCHLOROTHIAZIDE
     Route: 048
  4. LEVOTHYROX 125 MICROGRAMMES, COMPRIM? S?CABLE [Concomitant]
     Active Substance: LEVOTHYROXINE SODIUM
     Indication: HYPOTHYROIDISM
     Route: 048
  5. VALSARTAN. [Concomitant]
     Active Substance: VALSARTAN
     Route: 048
  6. CABOMETYX [Suspect]
     Active Substance: CABOZANTINIB S-MALATE
     Indication: RENAL CANCER
     Dosage: UNK DF, UNK
     Dates: start: 20170925, end: 20180212
  7. AERIUS 5 MG, COMPRIM? PELLICUL? [Concomitant]
     Route: 048
     Dates: end: 201802
  8. PRAVASTATIN SODIQUE [Concomitant]
     Route: 048
  9. SINGULAIR [Concomitant]
     Active Substance: MONTELUKAST SODIUM
     Route: 048
  10. TOUJEO [Concomitant]
     Active Substance: INSULIN GLARGINE
     Route: 058
     Dates: start: 201707, end: 20180214

REACTIONS (2)
  - Eosinophilia [Recovered/Resolved]
  - Cerebellar infarction [Recovering/Resolving]

NARRATIVE: CASE EVENT DATE: 20171120
